FAERS Safety Report 9244376 (Version 2)
Quarter: 2013Q2

REPORT INFORMATION
  Report Type: Spontaneous
  Country: US (occurrence: US)
  Receive Date: 20130419
  Receipt Date: 20130503
  Transmission Date: 20140414
  Serious: Yes (Hospitalization, Other)
  Sender: FDA-Public Use
  Company Number: US-RB-052378-13

PATIENT
  Age: 46 Year
  Sex: Male

DRUGS (2)
  1. SUBOXONE TABLET [Suspect]
     Indication: DRUG DEPENDENCE
     Route: 060
     Dates: start: 2007, end: 201304
  2. NICOTINE [Concomitant]
     Indication: NICOTINE DEPENDENCE
     Dosage: SMOKES A PACK A DAY
     Route: 055

REACTIONS (4)
  - Pancreatitis [Not Recovered/Not Resolved]
  - Thrombosis [Recovered/Resolved]
  - Nasal congestion [Not Recovered/Not Resolved]
  - Drug withdrawal syndrome [Not Recovered/Not Resolved]
